FAERS Safety Report 5473208-4 (Version None)
Quarter: 2007Q3

REPORT INFORMATION
  Report Type: 
  Country: None (occurrence: None)
  Receive Date: 20070927
  Receipt Date: 20070918
  Transmission Date: 20080115
  Serious: Yes (Life-Threatening)
  Sender: FDA-Public Use
  Company Number: 2007SP014710

PATIENT
  Age: 56 Year
  Sex: Female

DRUGS (5)
  1. BETAMETHASONE SODIUM PHOSPHATE [Suspect]
     Indication: ALLERGY PROPHYLAXIS
     Dosage: 24 MG; QD; IV
     Route: 042
     Dates: start: 20070718, end: 20070718
  2. RANITIDINE [Suspect]
     Indication: DRUG USE FOR UNKNOWN INDICATION
     Dosage: 50 MG; QD; IV
     Route: 042
     Dates: start: 20070718, end: 20070718
  3. TAXOL [Concomitant]
  4. SOLITA T [Concomitant]
  5. VEEN-F [Concomitant]

REACTIONS (1)
  - ANAPHYLACTIC SHOCK [None]
